FAERS Safety Report 9408797 (Version 9)
Quarter: 2014Q1

REPORT INFORMATION
  Report Type: Spontaneous
  Country: CA (occurrence: CA)
  Receive Date: 20130719
  Receipt Date: 20140225
  Transmission Date: 20141002
  Serious: Yes (Hospitalization, Other)
  Sender: FDA-Public Use
  Company Number: CA-AMGEN-CANSP2013025600

PATIENT
  Age: 65 Year
  Sex: Female
  Weight: 68.89 kg

DRUGS (20)
  1. NEUPOGEN [Suspect]
     Indication: CHRONIC LYMPHOCYTIC LEUKAEMIA
     Dosage: UNK
     Route: 065
     Dates: start: 201003, end: 201101
  2. NEULASTA [Suspect]
     Indication: CHRONIC LYMPHOCYTIC LEUKAEMIA
     Dosage: UNK
     Route: 065
     Dates: start: 201003, end: 201101
  3. RITUXAN [Suspect]
     Indication: CHRONIC LYMPHOCYTIC LEUKAEMIA
     Dosage: 630 MG, 1 IN 3 WK
     Route: 042
     Dates: start: 20100412, end: 201009
  4. RITUXAN [Suspect]
     Dosage: 840 MG, 1 IN 3WK
     Route: 042
     Dates: start: 20100525
  5. RITUXAN [Suspect]
     Dosage: 645 MG, 1 IN 4 WK
     Route: 042
     Dates: start: 20130509
  6. RITUXAN [Suspect]
     Dosage: 375 MG/M2, 1 IN 3 WK
     Route: 042
     Dates: start: 201305, end: 20130808
  7. FLUDARABINE /01004602/ [Suspect]
     Indication: CHRONIC LYMPHOCYTIC LEUKAEMIA
     Dosage: UNK
     Route: 065
     Dates: start: 201003, end: 201101
  8. CYCLOPHOSPHAMIDE [Suspect]
     Indication: CHRONIC LYMPHOCYTIC LEUKAEMIA
     Dosage: 750 MG/M2, 1 IN 3 WK
     Route: 042
     Dates: start: 201305
  9. CYCLOPHOSPHAMIDE [Suspect]
     Indication: LYMPHOMA
  10. ADRIAMYCIN /00330901/ [Suspect]
     Indication: CHRONIC LYMPHOCYTIC LEUKAEMIA
     Dosage: 50 MG/M2, 1 IN 3 WK
     Route: 042
     Dates: start: 201305
  11. ADRIAMYCIN /00330901/ [Suspect]
     Indication: LYMPHOMA
  12. VINCRISTINE [Suspect]
     Indication: CHRONIC LYMPHOCYTIC LEUKAEMIA
     Dosage: 2 MG, 1 IN 3 WK
     Route: 042
     Dates: start: 201305
  13. VINCRISTINE [Suspect]
     Indication: LYMPHOMA
  14. PREDNISONE [Suspect]
     Indication: CHRONIC LYMPHOCYTIC LEUKAEMIA
     Dosage: 100 MG, 1 IN 3 WK X 5 D
     Route: 048
     Dates: start: 201305
  15. PREDNISONE [Suspect]
     Indication: LYMPHOMA
  16. PROCHLORPERAZINE [Concomitant]
     Indication: NAUSEA
     Dosage: UNK
     Dates: start: 201004
  17. CENTRUM                            /07499601/ [Concomitant]
     Dosage: UNK
  18. VITAMIN D                          /00107901/ [Concomitant]
     Dosage: UNK
  19. LIVEROIL [Concomitant]
     Dosage: UNK
  20. BENADRYL                           /00000402/ [Concomitant]
     Dosage: UNK

REACTIONS (24)
  - Febrile neutropenia [Recovered/Resolved]
  - Clostridium difficile infection [Unknown]
  - Platelet count decreased [Unknown]
  - Pyrexia [Not Recovered/Not Resolved]
  - Infection [Not Recovered/Not Resolved]
  - Heart rate abnormal [Not Recovered/Not Resolved]
  - Hypotension [Unknown]
  - Lymphadenitis [Not Recovered/Not Resolved]
  - White blood cell count decreased [Unknown]
  - Thrombosis [Not Recovered/Not Resolved]
  - Weight decreased [Not Recovered/Not Resolved]
  - Blood magnesium decreased [Not Recovered/Not Resolved]
  - Arthralgia [Not Recovered/Not Resolved]
  - Malaise [Unknown]
  - Productive cough [Not Recovered/Not Resolved]
  - Fatigue [Not Recovered/Not Resolved]
  - Nausea [Not Recovered/Not Resolved]
  - Muscle twitching [Not Recovered/Not Resolved]
  - Blood test abnormal [Not Recovered/Not Resolved]
  - Asthenia [Not Recovered/Not Resolved]
  - Lymphadenopathy [Not Recovered/Not Resolved]
  - Lymph node pain [Not Recovered/Not Resolved]
  - Disease progression [Not Recovered/Not Resolved]
  - Pyrexia [Unknown]
